FAERS Safety Report 25398309 (Version 6)
Quarter: 2025Q4

REPORT INFORMATION
  Report Type: Spontaneous
  Country: US (occurrence: US)
  Receive Date: 20250604
  Receipt Date: 20251211
  Transmission Date: 20260118
  Serious: No
  Sender: SANOFI AVENTIS
  Company Number: US-SA-2025SA158165

PATIENT
  Age: 71 Year
  Sex: Female

DRUGS (3)
  1. DUPIXENT [Suspect]
     Active Substance: DUPILUMAB
     Indication: Asthma
     Dosage: 600 MG, 1X
     Route: 058
     Dates: start: 20250530, end: 20250530
  2. DUPIXENT [Suspect]
     Active Substance: DUPILUMAB
     Dosage: 300 MG, QOW
     Route: 058
     Dates: start: 20250613, end: 2025
  3. NUCALA [Concomitant]
     Active Substance: MEPOLIZUMAB

REACTIONS (17)
  - Fatigue [Unknown]
  - Trigger finger [Unknown]
  - Eczema [Unknown]
  - Muscle spasms [Unknown]
  - Coronavirus infection [Unknown]
  - Respiratory tract congestion [Not Recovered/Not Resolved]
  - Headache [Recovered/Resolved]
  - Viral infection [Not Recovered/Not Resolved]
  - Cough [Unknown]
  - Sneezing [Unknown]
  - Nasopharyngitis [Unknown]
  - Back pain [Unknown]
  - Asthma [Recovering/Resolving]
  - Dyspnoea [Unknown]
  - Cough [Recovering/Resolving]
  - Arthralgia [Recovering/Resolving]
  - Myalgia [Unknown]

NARRATIVE: CASE EVENT DATE: 20250101
